FAERS Safety Report 25089078 (Version 1)
Quarter: 2025Q1

REPORT INFORMATION
  Report Type: Spontaneous
  Country: IN (occurrence: IN)
  Receive Date: 20250318
  Receipt Date: 20250318
  Transmission Date: 20250409
  Serious: Yes (Hospitalization, Other)
  Sender: SANOFI AVENTIS
  Company Number: IN-DialogSolutions-SAAVPROD-PI746568-C1

PATIENT
  Age: 50 Year
  Sex: Female

DRUGS (2)
  1. INSULIN GLARGINE [Suspect]
     Active Substance: INSULIN GLARGINE
     Indication: Type 2 diabetes mellitus
  2. INSULIN NOS [Suspect]
     Active Substance: INSULIN NOS
     Indication: Type 2 diabetes mellitus

REACTIONS (16)
  - Neuropathy peripheral [Recovered/Resolved]
  - Paraesthesia [Recovered/Resolved]
  - Arthralgia [Recovered/Resolved]
  - Areflexia [Recovered/Resolved]
  - Decreased vibratory sense [Recovered/Resolved]
  - Loss of proprioception [Recovered/Resolved]
  - Syncope [Recovered/Resolved]
  - Reduced parasympathetic activity [Recovered/Resolved]
  - Autonomic neuropathy [Recovered/Resolved]
  - Nerve injury [Recovered/Resolved]
  - Palpitations [Recovered/Resolved]
  - Neuralgia [Recovered/Resolved]
  - Orthostatic hypotension [Recovered/Resolved]
  - Sinus tachycardia [Unknown]
  - Pain in extremity [Recovering/Resolving]
  - Autonomic nervous system imbalance [Recovering/Resolving]
